FAERS Safety Report 13921832 (Version 2)
Quarter: 2017Q3

REPORT INFORMATION
  Report Type: Report from Study
  Country: US (occurrence: US)
  Receive Date: 20170830
  Receipt Date: 20170928
  Transmission Date: 20171127
  Serious: Yes (Hospitalization)
  Sender: FDA-Public Use
  Company Number: US-ACTELION-A-NJ2017-158704

PATIENT
  Age: 65 Year
  Sex: Female
  Weight: 62.13 kg

DRUGS (1)
  1. OPSUMIT [Suspect]
     Active Substance: MACITENTAN
     Indication: PULMONARY HYPERTENSION
     Dosage: 10 MG, UNK
     Route: 048

REACTIONS (5)
  - Syncope [Unknown]
  - Pneumonia [Unknown]
  - Fall [Unknown]
  - Hypotension [Unknown]
  - Dyspnoea [Unknown]
